FAERS Safety Report 7421749-2 (Version None)
Quarter: 2011Q2

REPORT INFORMATION
  Report Type: 
  Country: None (occurrence: None)
  Receive Date: 20110418
  Receipt Date: 20110413
  Transmission Date: 20111010
  Serious: Yes (Other)
  Sender: FDA-Public Use
  Company Number: FR-KINGPHARMUSA00001-K201100446

PATIENT
  Age: 72 Year
  Sex: Male

DRUGS (4)
  1. SELOKEN [Suspect]
     Dosage: 100 MG, QD
  2. SIMVASTATIN [Suspect]
     Dosage: 40 MG, QD
     Dates: start: 20080101, end: 20110301
  3. ALTACE [Suspect]
     Dosage: 5 MG, QD
     Route: 048
  4. TROMBYL [Concomitant]

REACTIONS (3)
  - BRADYCARDIA [None]
  - GAIT DISTURBANCE [None]
  - HYPOTENSION [None]
